FAERS Safety Report 6835809-8 (Version None)
Quarter: 2010Q2

REPORT INFORMATION
  Report Type: 
  Country: None (occurrence: None)
  Receive Date: 20100520
  Receipt Date: 20090521
  Transmission Date: 20101027
  Serious: Yes (Hospitalization, Other)
  Sender: FDA-Public Use
  Company Number: 2009217717

PATIENT
  Age: 55 Year

DRUGS (9)
  1. PROVERA [Suspect]
     Indication: HORMONE REPLACEMENT THERAPY
     Dates: start: 19850930, end: 19870101
  2. PREMPRO [Suspect]
     Indication: HORMONE REPLACEMENT THERAPY
     Dosage: 0.625/2.5MG
     Dates: start: 19961125, end: 19980201
  3. CYCRIN [Suspect]
     Indication: HORMONE REPLACEMENT THERAPY
     Dosage: 10 MG
     Dates: start: 19960318, end: 19960601
  4. ESTROGENS () [Suspect]
     Indication: HORMONE REPLACEMENT THERAPY
     Dosage: 0.625, ORAL
     Route: 048
     Dates: start: 19940101
  5. PROGESTERONE [Suspect]
     Indication: HORMONE REPLACEMENT THERAPY
     Dates: start: 19890711
  6. PREMARIN [Suspect]
     Indication: HORMONE REPLACEMENT THERAPY
     Dates: start: 19850604, end: 19960901
  7. AMEN [Suspect]
     Indication: HORMONE REPLACEMENT THERAPY
     Dates: start: 19851026, end: 19960101
  8. CONJUGATED ESTROGENS [Suspect]
     Indication: HORMONE REPLACEMENT THERAPY
     Dosage: 0.3
     Dates: start: 19880719, end: 19910809
  9. ALBUTEROL [Concomitant]

REACTIONS (1)
  - BREAST CANCER FEMALE [None]
